FAERS Safety Report 4856093-0 (Version None)
Quarter: 2005Q4

REPORT INFORMATION
  Report Type: 
  Country: None (occurrence: None)
  Receive Date: 20051216
  Receipt Date: 20050517
  Transmission Date: 20060501
  Serious: Yes (Hospitalization)
  Sender: FDA-Public Use
  Company Number: US-MERCK-0505USA02126

PATIENT
  Age: 86 Year
  Sex: Female
  Weight: 64 kg

DRUGS (12)
  1. VIOXX [Suspect]
     Indication: ARTHRITIS
     Route: 048
     Dates: start: 19990615, end: 20020503
  2. ALTACE [Concomitant]
     Route: 048
  3. ELAVIL [Concomitant]
     Route: 048
  4. HUMULIN N [Concomitant]
     Route: 058
  5. HUMULIN N [Concomitant]
     Route: 058
  6. HUMULIN N [Concomitant]
     Route: 058
  7. LIPITOR [Concomitant]
     Route: 048
  8. CARDIZEM CD [Concomitant]
     Route: 048
  9. NITRO-DUR [Concomitant]
     Route: 061
  10. ASPIRIN [Concomitant]
     Route: 048
  11. NITROSTAT [Concomitant]
     Route: 065
  12. PREDNISONE [Concomitant]
     Route: 048

REACTIONS (18)
  - ACUTE MYOCARDIAL INFARCTION [None]
  - CARDIOMEGALY [None]
  - COLITIS [None]
  - CORONARY ARTERY DISEASE [None]
  - DIFFICULTY IN WALKING [None]
  - DIVERTICULUM [None]
  - FALL [None]
  - GASTROINTESTINAL DISORDER [None]
  - HAEMATOMA [None]
  - HAEMOGLOBIN DECREASED [None]
  - LOWER GASTROINTESTINAL HAEMORRHAGE [None]
  - NAUSEA [None]
  - RHEUMATOID ARTHRITIS [None]
  - TEMPORAL ARTERITIS [None]
  - TRANSIENT ISCHAEMIC ATTACK [None]
  - ULCER [None]
  - VASCULAR INSUFFICIENCY [None]
  - VERTIGO [None]
